FAERS Safety Report 15862738 (Version 1)
Quarter: 2019Q1

REPORT INFORMATION
  Report Type: Spontaneous
  Country: US (occurrence: US)
  Receive Date: 20190124
  Receipt Date: 20190124
  Transmission Date: 20190417
  Serious: Yes (Other)
  Sender: FDA-Public Use
  Company Number: None

PATIENT
  Age: 66 Year
  Sex: Female
  Weight: 76.5 kg

DRUGS (1)
  1. LORAZEPAM 1MG TAB [Suspect]
     Active Substance: LORAZEPAM
     Indication: ANXIETY
     Dosage: ?          QUANTITY:2 TABLET(S);?

REACTIONS (5)
  - Dyspnoea [None]
  - Malaise [None]
  - Product substitution issue [None]
  - Vomiting [None]
  - Gait disturbance [None]

NARRATIVE: CASE EVENT DATE: 20190118
